FAERS Safety Report 21408802 (Version 8)
Quarter: 2024Q2

REPORT INFORMATION
  Report Type: Spontaneous
  Country: US (occurrence: US)
  Receive Date: 20221004
  Receipt Date: 20240417
  Transmission Date: 20240716
  Serious: No
  Sender: FDA-Public Use
  Company Number: US-PFIZER INC-PV202200075886

PATIENT
  Age: 71 Year
  Sex: Male

DRUGS (8)
  1. INLYTA [Suspect]
     Active Substance: AXITINIB
     Indication: Renal cancer metastatic
     Dosage: 4 MG
     Route: 048
  2. INLYTA [Suspect]
     Active Substance: AXITINIB
     Dosage: 3 MG, 2X/DAY (EVERY 12 (TWELVE) HOURS FOR 28 DAYS)
     Route: 048
  3. INLYTA [Suspect]
     Active Substance: AXITINIB
     Dosage: TAKE 3 TABLETS (3 MG TOTAL) BY MOUTH EVERY 12 (TWELVE) HOURS FOR 14 DAYS
     Route: 048
  4. INLYTA [Suspect]
     Active Substance: AXITINIB
     Dosage: 1 MG
  5. INLYTA [Suspect]
     Active Substance: AXITINIB
     Dosage: TAKE 6 PILLS DAILY FOR 30 DAYS
  6. XANAX [Concomitant]
     Active Substance: ALPRAZOLAM
     Dosage: 1 MG, AS NEEDED AT BEDTIME FOR 90 DAYS
     Route: 048
     Dates: start: 20220510
  7. XANAX [Concomitant]
     Active Substance: ALPRAZOLAM
     Dosage: 0.5 MG, AS NEEDED AT BED TIME
     Route: 048
     Dates: start: 20221010
  8. XANAX [Concomitant]
     Active Substance: ALPRAZOLAM
     Dosage: UNK
     Dates: start: 20220510

REACTIONS (2)
  - Dysphagia [Unknown]
  - Taste disorder [Unknown]
